FAERS Safety Report 24678477 (Version 2)
Quarter: 2025Q3

REPORT INFORMATION
  Report Type: Report from Study
  Country: US (occurrence: US)
  Receive Date: 20241129
  Receipt Date: 20250803
  Transmission Date: 20251020
  Serious: Yes (Other)
  Sender: ALEXION PHARMACEUTICALS
  Company Number: US-AstraZeneca-CH-00757200A

PATIENT
  Sex: Female
  Weight: 62.132 kg

DRUGS (5)
  1. SELUMETINIB [Suspect]
     Active Substance: SELUMETINIB
     Indication: Nervous system neoplasm benign
     Dosage: 30 MILLIGRAM, BID
  2. DOXYCYCLINE [Concomitant]
     Active Substance: DOXYCYCLINE
     Route: 065
  3. FAMOTIDINE [Concomitant]
     Active Substance: FAMOTIDINE
     Route: 065
  4. FLAGYL [Concomitant]
     Active Substance: METRONIDAZOLE\METRONIDAZOLE HYDROCHLORIDE
     Route: 065
  5. NORETHINDRONE [Concomitant]
     Active Substance: NORETHINDRONE
     Route: 065

REACTIONS (1)
  - Uterine infection [Unknown]
